FAERS Safety Report 12157251 (Version 1)
Quarter: 2016Q1

REPORT INFORMATION
  Report Type: Report from Study
  Country: GB (occurrence: GB)
  Receive Date: 20160308
  Receipt Date: 20160308
  Transmission Date: 20160526
  Serious: Yes (Hospitalization)
  Sender: FDA-Public Use
  Company Number: GB-ROCHE-1619244

PATIENT
  Sex: Male

DRUGS (1)
  1. ESBRIET [Suspect]
     Active Substance: PIRFENIDONE
     Indication: IDIOPATHIC PULMONARY FIBROSIS
     Route: 048

REACTIONS (6)
  - Oesophageal haemorrhage [Unknown]
  - Pulmonary function test decreased [Unknown]
  - Liver function test abnormal [Unknown]
  - Hypotension [Unknown]
  - Diarrhoea [Unknown]
  - Cough [Recovering/Resolving]
